FAERS Safety Report 17400478 (Version 1)
Quarter: 2020Q1

REPORT INFORMATION
  Report Type: Spontaneous
  Country: JP (occurrence: JP)
  Receive Date: 20200211
  Receipt Date: 20200211
  Transmission Date: 20200409
  Serious: Yes (Death, Other)
  Sender: FDA-Public Use
  Company Number: JP-CHEPLA-C20200616

PATIENT
  Age: 77 Year
  Sex: Male
  Weight: 51 kg

DRUGS (13)
  1. CRAVIT [Suspect]
     Active Substance: LEVOFLOXACIN
     Indication: ATYPICAL MYCOBACTERIAL INFECTION
     Dosage: 600 MG, QD
  2. PREDNISOLONE. [Suspect]
     Active Substance: PREDNISOLONE
     Indication: RHEUMATOID ARTHRITIS
     Dosage: 5 MG, QD
     Route: 048
  3. KOLBET [Concomitant]
     Active Substance: IGURATIMOD
  4. GANCICLOVIR. [Suspect]
     Active Substance: GANCICLOVIR
     Indication: CYTOMEGALOVIRUS INFECTION
  5. THYRADIN [Concomitant]
     Active Substance: LEVOTHYROXINE
  6. AMPICILLIN [Suspect]
     Active Substance: AMPICILLIN
     Indication: ATYPICAL MYCOBACTERIAL INFECTION
  7. ETHAMBUTOL [Suspect]
     Active Substance: ETHAMBUTOL HYDROCHLORIDE
     Indication: ATYPICAL MYCOBACTERIAL INFECTION
     Dosage: 750 MG, QOD
  8. VANCOMYCIN HYDROCHLORIDE. [Suspect]
     Active Substance: VANCOMYCIN HYDROCHLORIDE
     Indication: ATYPICAL MYCOBACTERIAL INFECTION
  9. RIFADIN [Suspect]
     Active Substance: RIFAMPIN
     Indication: ATYPICAL MYCOBACTERIAL INFECTION
     Dosage: 600 MG, QD
     Route: 065
  10. PREDNISOLONE. [Suspect]
     Active Substance: PREDNISOLONE
     Indication: RHEUMATOID ARTHRITIS
     Dosage: 2 MG, QD
     Route: 048
  11. MEROPENEM TRIHYDRATE [Suspect]
     Active Substance: MEROPENEM
     Indication: ATYPICAL MYCOBACTERIAL INFECTION
  12. CLARITHROMYCIN. [Suspect]
     Active Substance: CLARITHROMYCIN
     Indication: ATYPICAL MYCOBACTERIAL INFECTION
     Dosage: 400 MG, QD
  13. SAMTIREL [Suspect]
     Active Substance: ATOVAQUONE
     Indication: PNEUMOCYSTIS JIROVECII PNEUMONIA

REACTIONS (10)
  - Adrenal insufficiency [Unknown]
  - Respiratory failure [Fatal]
  - Hepatic enzyme increased [Unknown]
  - Cellulitis [Unknown]
  - Pneumocystis jirovecii pneumonia [Unknown]
  - Renal impairment [Unknown]
  - Pyrexia [Unknown]
  - Pneumonia [Unknown]
  - Rash [Unknown]
  - Diarrhoea [Unknown]
